FAERS Safety Report 18455281 (Version 1)
Quarter: 2020Q4

REPORT INFORMATION
  Report Type: Report from Study
  Country: None (occurrence: NL)
  Receive Date: 20201103
  Receipt Date: 20201103
  Transmission Date: 20210114
  Serious: Yes (Hospitalization)
  Sender: FDA-Public Use
  Company Number: NL-ABBVIE-20K-114-3630269-00

PATIENT
  Sex: Male

DRUGS (4)
  1. DUODOPA [Suspect]
     Active Substance: CARBIDOPA\LEVODOPA
     Indication: PARKINSON^S DISEASE
     Dosage: MD: 14.5ML, CD: 4.9ML/H, ED:0.0ML
     Route: 050
     Dates: start: 20190123
  2. NEUPRO [Concomitant]
     Active Substance: ROTIGOTINE
     Indication: PARKINSON^S DISEASE
  3. DUODOPA [Suspect]
     Active Substance: CARBIDOPA\LEVODOPA
  4. CLOZAPINE. [Concomitant]
     Active Substance: CLOZAPINE
     Indication: PARKINSON^S DISEASE

REACTIONS (5)
  - Panic reaction [Recovered/Resolved]
  - Device kink [Recovered/Resolved]
  - Parkinson^s disease [Recovered/Resolved]
  - Gastrointestinal pain [Not Recovered/Not Resolved]
  - Hyperventilation [Unknown]

NARRATIVE: CASE EVENT DATE: 2020
